FAERS Safety Report 10309952 (Version 1)
Quarter: 2014Q3

REPORT INFORMATION
  Report Type: Spontaneous
  Country: US (occurrence: None)
  Receive Date: 20140715
  Receipt Date: 20140715
  Transmission Date: 20150326
  Serious: Yes (Other)
  Sender: FDA-Public Use
  Company Number: None

PATIENT
  Age: 39 Year
  Sex: Female
  Weight: 73.94 kg

DRUGS (1)
  1. LYSTEDA [Suspect]
     Active Substance: TRANEXAMIC ACID
     Indication: MENSTRUAL DISORDER
     Dosage: TAKEN BY MOUTH
     Route: 048
     Dates: start: 20140707, end: 20140709

REACTIONS (3)
  - Oedema peripheral [None]
  - Peripheral swelling [None]
  - Joint swelling [None]

NARRATIVE: CASE EVENT DATE: 20140710
